FAERS Safety Report 5105830-9 (Version None)
Quarter: 2006Q3

REPORT INFORMATION
  Report Type: 
  Country: None (occurrence: None)
  Receive Date: 20060912
  Receipt Date: 20060823
  Transmission Date: 20061208
  Serious: Yes (Hospitalization, Other)
  Sender: FDA-Public Use
  Company Number: US200608005023

PATIENT
  Age: 67 Year
  Sex: Female

DRUGS (9)
  1. HUMULIN N [Suspect]
     Indication: DIABETES MELLITUS NON-INSULIN-DEPENDENT
     Dosage: 55 U, EACH MORNING; SEE IMAGE
     Dates: start: 20010101, end: 20060601
  2. HUMULIN N [Suspect]
     Indication: DIABETES MELLITUS NON-INSULIN-DEPENDENT
     Dosage: 55 U, EACH MORNING; SEE IMAGE
     Dates: start: 20060601
  3. HUMULIN N [Suspect]
     Indication: DIABETES MELLITUS NON-INSULIN-DEPENDENT
     Dosage: 55 U, EACH MORNING; SEE IMAGE
     Dates: start: 20060601
  4. ASPIRIN [Concomitant]
  5. CRESTOR [Concomitant]
  6. COREG [Concomitant]
  7. ZETIA [Concomitant]
  8. LISINOPRIL [Concomitant]
  9. PREDNISONE TAB [Concomitant]

REACTIONS (10)
  - ALBUMIN URINE PRESENT [None]
  - ARTHRALGIA [None]
  - BLOOD PRESSURE INADEQUATELY CONTROLLED [None]
  - CAROTID ARTERY STENOSIS [None]
  - GLYCOSYLATED HAEMOGLOBIN INCREASED [None]
  - HYPOTENSION [None]
  - LOSS OF CONSCIOUSNESS [None]
  - PAIN IN EXTREMITY [None]
  - TRANSIENT ISCHAEMIC ATTACK [None]
  - VASCULAR OCCLUSION [None]
